FAERS Safety Report 6026677-5 (Version None)
Quarter: 2008Q4

REPORT INFORMATION
  Report Type: 
  Country: None (occurrence: None)
  Receive Date: 20081231
  Receipt Date: 20081222
  Transmission Date: 20090506
  Serious: Yes (Death)
  Sender: FDA-Public Use
  Company Number: BET-1645-AE

PATIENT
  Age: 81 Year
  Sex: Female
  Weight: 58.9676 kg

DRUGS (1)
  1. BETIMOL [Suspect]
     Indication: GLAUCOMA
     Dosage: ONE DROP; BOTH EYES; DAILY; MANY YEARS

REACTIONS (1)
  - DEATH [None]
